FAERS Safety Report 4684766-1 (Version None)
Quarter: 2005Q2

REPORT INFORMATION
  Report Type: 
  Country: None (occurrence: None)
  Receive Date: 20050531
  Receipt Date: 20041206
  Transmission Date: 20051028
  Serious: Yes (Hospitalization, Other)
  Sender: FDA-Public Use
  Company Number: USA041285430

PATIENT
  Age: 42 Year
  Sex: Male

DRUGS (2)
  1. ZYPREXA [Suspect]
     Indication: MAJOR DEPRESSION
     Dosage: 15 MG DAY
  2. ZYPREXA [Suspect]
     Indication: PSYCHOTIC DISORDER
     Dosage: 15 MG DAY

REACTIONS (1)
  - BLOOD GLUCOSE INCREASED [None]
